FAERS Safety Report 25963082 (Version 1)
Quarter: 2025Q4

REPORT INFORMATION
  Report Type: Spontaneous
  Country: US (occurrence: US)
  Receive Date: 20251027
  Receipt Date: 20251027
  Transmission Date: 20260118
  Serious: No
  Sender: ROCHE
  Company Number: US-ROCHE-10000417678

PATIENT
  Sex: Female

DRUGS (2)
  1. ALECENSA [Suspect]
     Active Substance: ALECTINIB HYDROCHLORIDE
     Indication: Pancreatic carcinoma
     Route: 048
     Dates: start: 202503
  2. ALECENSA [Suspect]
     Active Substance: ALECTINIB HYDROCHLORIDE
     Indication: Metastases to lymph nodes

REACTIONS (2)
  - Off label use [Unknown]
  - No adverse event [Unknown]
